FAERS Safety Report 24610479 (Version 5)
Quarter: 2025Q3

REPORT INFORMATION
  Report Type: Report from Study
  Country: US (occurrence: US)
  Receive Date: 20241112
  Receipt Date: 20250910
  Transmission Date: 20251020
  Serious: No
  Sender: SUNOVION
  Company Number: US-SUMITOMO PHARMA SWITZERLAND GMBH-2024SPA004807

PATIENT
  Age: 79 Year
  Sex: Male

DRUGS (3)
  1. ORGOVYX [Suspect]
     Active Substance: RELUGOLIX
     Indication: Prostate cancer
     Route: 048
     Dates: start: 20240912, end: 20240912
  2. ORGOVYX [Suspect]
     Active Substance: RELUGOLIX
     Dosage: 120 MG, QD
     Route: 048
     Dates: start: 20240913
  3. XTANDI [Concomitant]
     Active Substance: ENZALUTAMIDE
     Indication: Prostate cancer
     Dosage: 160 MG, QD
     Dates: start: 20240912

REACTIONS (7)
  - Pain [Unknown]
  - Muscular dystrophy [Unknown]
  - Skin wrinkling [Unknown]
  - Vision blurred [Unknown]
  - Feeling hot [Unknown]
  - Hot flush [Unknown]
  - Inappropriate schedule of product administration [Unknown]
